FAERS Safety Report 6433551-9 (Version None)
Quarter: 2009Q4

REPORT INFORMATION
  Report Type: 
  Country: None (occurrence: None)
  Receive Date: 20091110
  Receipt Date: 20091030
  Transmission Date: 20100525
  Serious: Yes (Life-Threatening)
  Sender: FDA-Public Use
  Company Number: DE-RANBAXY-2009RR-22635

PATIENT
  Age: 66 Year
  Sex: Female
  Weight: 93 kg

DRUGS (3)
  1. RAMIPRIL [Suspect]
     Indication: HYPERTENSION
     Dosage: 2.5 MG, QD
     Route: 048
  2. METOHEXAL [Suspect]
     Indication: HYPERTENSION
     Dosage: 47.5 MG, BID
     Route: 048
     Dates: end: 20090206
  3. NAPROXEN [Concomitant]
     Indication: OSTEOARTHRITIS
     Dosage: 250 MG, BID
     Route: 048

REACTIONS (1)
  - SINOATRIAL BLOCK [None]
